FAERS Safety Report 21326252 (Version 1)
Quarter: 2022Q3

REPORT INFORMATION
  Report Type: Spontaneous
  Country: US (occurrence: US)
  Receive Date: 20220913
  Receipt Date: 20220913
  Transmission Date: 20221027
  Serious: Yes (Hospitalization, Other)
  Sender: FDA-Public Use
  Company Number: US-ADVANZ PHARMA-202207005506

PATIENT

DRUGS (18)
  1. CLONIDINE [Suspect]
     Active Substance: CLONIDINE
     Indication: Pain
     Dosage: 0.1 MG, TID
  2. CLONIDINE [Suspect]
     Active Substance: CLONIDINE
     Dosage: 0.2 MG, TID (INCREASED)
  3. CLONIDINE [Suspect]
     Active Substance: CLONIDINE
     Dosage: 0.1 MG, TID (DECREASED)
  4. GABAPENTIN [Suspect]
     Active Substance: GABAPENTIN
     Indication: Pain
     Dosage: 100 MG, TID
  5. ACETAMINOPHEN [Suspect]
     Active Substance: ACETAMINOPHEN
     Indication: Pain
     Dosage: UNK, PRN
  6. OXYCODONE [Suspect]
     Active Substance: OXYCODONE
     Dosage: 10 MG EVERY 4 HOURS
     Route: 048
  7. DEXMEDETOMIDINE [Suspect]
     Active Substance: DEXMEDETOMIDINE
     Dosage: UNK (CONTINUOUS INFUSION)
  8. DEXMEDETOMIDINE [Suspect]
     Active Substance: DEXMEDETOMIDINE
     Dosage: UNK (1.4 MCG/KG/H)
  9. FENTANYL [Suspect]
     Active Substance: FENTANYL
     Indication: Analgesic therapy
     Dosage: UNK (CONTINUOUS INFUSION)
  10. FENTANYL [Suspect]
     Active Substance: FENTANYL
     Indication: Sedation
  11. PROPOFOL [Suspect]
     Active Substance: PROPOFOL
     Indication: Sedation
     Dosage: UNK
  12. PROPOFOL [Suspect]
     Active Substance: PROPOFOL
     Indication: Analgesic therapy
     Dosage: UNK (30 MCG/KG/MIN)
  13. DOCUSATE [Concomitant]
     Active Substance: DOCUSATE
     Dosage: UNK
  14. SENNA [Concomitant]
     Active Substance: SENNA LEAF\SENNOSIDES\SENNOSIDES A AND B
     Dosage: UNK
  15. POLYETHYLENE GLYCOL [Concomitant]
     Active Substance: POLYETHYLENE GLYCOL
     Dosage: UNK
  16. BISACODYL [Concomitant]
     Active Substance: BISACODYL
     Dosage: UNK
  17. ATROPINE [Concomitant]
     Active Substance: ATROPINE
     Indication: Cardiac arrest
     Dosage: UNK (BEDSIDE)
  18. ATROPINE [Concomitant]
     Active Substance: ATROPINE
     Dosage: 1 MG

REACTIONS (1)
  - Intestinal pseudo-obstruction [Recovered/Resolved]
